FAERS Safety Report 24415790 (Version 2)
Quarter: 2024Q4

REPORT INFORMATION
  Report Type: Spontaneous
  Country: US (occurrence: US)
  Receive Date: 20241009
  Receipt Date: 20241018
  Transmission Date: 20250114
  Serious: Yes (Hospitalization, Other)
  Sender: SANDOZ
  Company Number: US-SANDOZ-SDZ2024US084951

PATIENT
  Age: 56 Year
  Sex: Female

DRUGS (8)
  1. FLUOROURACIL [Suspect]
     Active Substance: FLUOROURACIL
     Dosage: 4200 MG, 46 HOURS, INTRAVENOUS (IV) PUMP
     Route: 042
     Dates: start: 20240902, end: 20240916
  2. FLUOROURACIL [Suspect]
     Active Substance: FLUOROURACIL
     Indication: Colon cancer
     Dosage: 738 MG, Q 14 DAYS
     Route: 042
     Dates: start: 20240902, end: 20240916
  3. LEUCOVORIN CALCIUM [Suspect]
     Active Substance: LEUCOVORIN CALCIUM
     Indication: Colon cancer
     Dosage: 922 MG, Q 14 DAYS
     Route: 042
     Dates: start: 20240902, end: 20240916
  4. IMODIUM [Suspect]
     Active Substance: LOPERAMIDE HYDROCHLORIDE
     Indication: Product used for unknown indication
     Dosage: 4 MG 4 MG, 4X/DAY
     Route: 048
  5. OXALIPLATIN [Suspect]
     Active Substance: OXALIPLATIN
     Indication: Colon cancer
     Dosage: 150 MG, Q 14 DAYS
     Route: 042
     Dates: start: 20240209, end: 20240916
  6. TRASTUZUMAB [Suspect]
     Active Substance: TRASTUZUMAB
     Indication: Colon cancer
     Dosage: 994 MG, EVERY (Q) 21 DAYS
     Route: 065
     Dates: start: 20240209, end: 20240916
  7. TUCATINIB [Suspect]
     Active Substance: TUCATINIB
     Indication: Colon cancer
     Dosage: 200 MG, 2X/DAY
     Route: 048
     Dates: start: 20240902, end: 20240916
  8. METFORMIN [Concomitant]
     Active Substance: METFORMIN HYDROCHLORIDE
     Indication: Type 2 diabetes mellitus
     Dosage: UNK
     Route: 065
     Dates: start: 20240923, end: 20240925

REACTIONS (5)
  - Acute kidney injury [Recovered/Resolved]
  - Diarrhoea [Unknown]
  - Hyponatraemia [Unknown]
  - Blood pressure decreased [Unknown]
  - Blood magnesium decreased [Unknown]

NARRATIVE: CASE EVENT DATE: 20240925
